FAERS Safety Report 6594350-0 (Version None)
Quarter: 2010Q1

REPORT INFORMATION
  Report Type: 
  Country: None (occurrence: None)
  Receive Date: 20100222
  Receipt Date: 20100209
  Transmission Date: 20100710
  Serious: Yes (Other)
  Sender: FDA-Public Use
  Company Number: US-TYCO HEALTHCARE/MALLINCKRODT-T201000628

PATIENT
  Age: 60 Year
  Sex: Female

DRUGS (6)
  1. ACETAMINOPHEN AND HYDROCODONE BITARTRATE [Suspect]
     Dosage: UNK
  2. PROPOXYPHENE HCL [Interacting]
     Dosage: UNK
  3. DEXTROMETHORPHAN HYDROBROMIDE [Interacting]
     Indication: UPPER RESPIRATORY TRACT INFECTION
     Dosage: GREATER THAN RECOMMENDED DOSE
  4. ATENOLOL [Concomitant]
  5. FUROSEMIDE [Concomitant]
     Dosage: UNK
  6. ESOMEPRAZOLE [Concomitant]
     Dosage: UNK

REACTIONS (11)
  - AGGRESSION [None]
  - AGITATION [None]
  - AMNESIA [None]
  - DELUSION [None]
  - DRUG INTERACTION [None]
  - HALLUCINATION, OLFACTORY [None]
  - HALLUCINATION, VISUAL [None]
  - PSYCHOTIC DISORDER [None]
  - ROAD TRAFFIC ACCIDENT [None]
  - SPEECH DISORDER [None]
  - URINARY TRACT INFECTION [None]
